FAERS Safety Report 18703871 (Version 1)
Quarter: 2021Q1

REPORT INFORMATION
  Report Type: Report from Study
  Country: None (occurrence: CA)
  Receive Date: 20210106
  Receipt Date: 20210106
  Transmission Date: 20210419
  Serious: Yes (Hospitalization)
  Sender: FDA-Public Use
  Company Number: CA-ABBVIE-21K-028-3715072-00

PATIENT
  Age: 30 Year
  Sex: Female

DRUGS (2)
  1. HUMIRA [Suspect]
     Active Substance: ADALIMUMAB
     Indication: CROHN^S DISEASE
     Route: 058
     Dates: end: 2020
  2. HUMIRA [Suspect]
     Active Substance: ADALIMUMAB
     Route: 058
     Dates: start: 2020

REACTIONS (8)
  - Anaemia [Not Recovered/Not Resolved]
  - SARS-CoV-2 test positive [Recovered/Resolved]
  - Muscle spasms [Not Recovered/Not Resolved]
  - Pneumonia [Unknown]
  - Haematochezia [Not Recovered/Not Resolved]
  - Oxygen saturation decreased [Recovered/Resolved]
  - Pain [Not Recovered/Not Resolved]
  - Faecal calprotectin increased [Not Recovered/Not Resolved]

NARRATIVE: CASE EVENT DATE: 2020
